FAERS Safety Report 5982161-6 (Version None)
Quarter: 2008Q4

REPORT INFORMATION
  Report Type: 
  Country: None (occurrence: None)
  Receive Date: 20081208
  Receipt Date: 20081128
  Transmission Date: 20090506
  Serious: Yes (Hospitalization, Other)
  Sender: FDA-Public Use
  Company Number: GB-RANBAXY-2008RR-19698

PATIENT
  Age: 20 Year
  Sex: Male
  Weight: 45 kg

DRUGS (3)
  1. ACETAMINOPHEN [Suspect]
     Indication: LOWER RESPIRATORY TRACT INFECTION
     Dosage: 1 G, QID
     Route: 050
  2. ACETAMINOPHEN [Suspect]
     Indication: MUSCULAR DYSTROPHY
  3. RANCEPINE [Suspect]
     Indication: EPILEPSY
     Route: 065

REACTIONS (2)
  - ACUTE HEPATIC FAILURE [None]
  - OVERDOSE [None]
